FAERS Safety Report 4337472-7 (Version None)
Quarter: 2004Q2

REPORT INFORMATION
  Report Type: 
  Country: None (occurrence: None)
  Receive Date: 20040413
  Receipt Date: 20040413
  Transmission Date: 20050107
  Serious: Yes (Other)
  Sender: FDA-Public Use
  Company Number: None

PATIENT
  Age: 52 Year
  Sex: Female

DRUGS (1)
  1. IMIPRAMINE [Suspect]
     Indication: URINARY INCONTINENCE
     Dosage: 1 TABLET 2 X DAILY
     Dates: start: 20040301

REACTIONS (3)
  - DRUG EFFECT DECREASED [None]
  - INCONTINENCE [None]
  - PHARMACEUTICAL PRODUCT COMPLAINT [None]
